FAERS Safety Report 19376242 (Version 1)
Quarter: 2021Q2

REPORT INFORMATION
  Report Type: Report from Study
  Country: KR (occurrence: KR)
  Receive Date: 20210604
  Receipt Date: 20210604
  Transmission Date: 20210717
  Serious: Yes (Other)
  Sender: FDA-Public Use
  Company Number: KR-AMGEN INC.-KORCT2021084091

PATIENT
  Age: 39 Year
  Sex: Female

DRUGS (38)
  1. RAMUCIRUMAB [Concomitant]
     Active Substance: RAMUCIRUMAB
     Dosage: UNK, QD
     Dates: start: 20181005, end: 20181005
  2. RAMUCIRUMAB [Concomitant]
     Active Substance: RAMUCIRUMAB
     Dosage: UNK, QD
     Dates: start: 20181105, end: 20181105
  3. RAMUCIRUMAB [Concomitant]
     Active Substance: RAMUCIRUMAB
     Dosage: UNK, QD
     Dates: start: 20181120, end: 20181120
  4. CHLORPHENAMINE [Concomitant]
     Active Substance: CHLORPHENIRAMINE MALEATE
     Dosage: 4 MILLIGRAM, QD
     Dates: start: 20181005, end: 20181005
  5. CHLORPHENAMINE [Concomitant]
     Active Substance: CHLORPHENIRAMINE MALEATE
     Dosage: 4 MILLIGRAM, QD
     Dates: start: 20181019, end: 20181019
  6. PACLITAXEL. [Concomitant]
     Active Substance: PACLITAXEL
     Dosage: UNK, QD (64)
     Dates: start: 20181019, end: 20181019
  7. PACLITAXEL. [Concomitant]
     Active Substance: PACLITAXEL
     Dosage: UNK, QD (80)
     Dates: start: 20180806, end: 20180806
  8. PACLITAXEL. [Concomitant]
     Active Substance: PACLITAXEL
     Dosage: UNK, QD (80)
     Dates: start: 20180903, end: 20180903
  9. RAMUCIRUMAB [Concomitant]
     Active Substance: RAMUCIRUMAB
     Dosage: UNK, QD
     Dates: start: 20180918, end: 20180918
  10. CHLORPHENAMINE [Concomitant]
     Active Substance: CHLORPHENIRAMINE MALEATE
     Dosage: 4 MILLIGRAM, QD
     Dates: start: 20181105, end: 20181105
  11. DEXAMETHASONE. [Concomitant]
     Active Substance: DEXAMETHASONE
     Dosage: 10 MILLIGRAM, QD
     Dates: start: 20181105, end: 20181105
  12. CHLORPHENAMINE [Concomitant]
     Active Substance: CHLORPHENIRAMINE MALEATE
     Dosage: 4 MILLIGRAM, QD
     Dates: start: 20180820, end: 20180820
  13. PACLITAXEL. [Concomitant]
     Active Substance: PACLITAXEL
     Dosage: UNK, QD (64)
     Dates: start: 20181120, end: 20181120
  14. PACLITAXEL. [Concomitant]
     Active Substance: PACLITAXEL
     Dosage: UNK, QD (80)
     Dates: start: 20180910, end: 20180910
  15. RAMUCIRUMAB [Concomitant]
     Active Substance: RAMUCIRUMAB
     Indication: PRODUCT USED FOR UNKNOWN INDICATION
     Dosage: UNK, QD
     Dates: start: 20180806, end: 20180806
  16. RAMUCIRUMAB [Concomitant]
     Active Substance: RAMUCIRUMAB
     Dosage: UNK, QD
     Dates: start: 20181019, end: 20181019
  17. CHLORPHENAMINE [Concomitant]
     Active Substance: CHLORPHENIRAMINE MALEATE
     Indication: PRODUCT USED FOR UNKNOWN INDICATION
     Dosage: 4 MILLIGRAM, QD
     Dates: start: 20180806, end: 20180806
  18. DEXAMETHASONE. [Concomitant]
     Active Substance: DEXAMETHASONE
     Indication: PRODUCT USED FOR UNKNOWN INDICATION
     Dosage: 10 MILLIGRAM, QD
     Dates: start: 20180806, end: 20180806
  19. DEXAMETHASONE. [Concomitant]
     Active Substance: DEXAMETHASONE
     Dosage: 10 MILLIGRAM, QD
     Dates: start: 20180820, end: 20180820
  20. DEXAMETHASONE. [Concomitant]
     Active Substance: DEXAMETHASONE
     Dosage: 10 MILLIGRAM, QD
     Dates: start: 20180903, end: 20180903
  21. DEXAMETHASONE. [Concomitant]
     Active Substance: DEXAMETHASONE
     Dosage: 10 MILLIGRAM, QD
     Dates: start: 20181019, end: 20181019
  22. PACLITAXEL. [Concomitant]
     Active Substance: PACLITAXEL
     Dosage: UNK, QD (64)
     Dates: start: 20181011, end: 20181011
  23. CHLORPHENAMINE [Concomitant]
     Active Substance: CHLORPHENIRAMINE MALEATE
     Dosage: 4 MILLIGRAM, QD
     Dates: start: 20180903, end: 20180903
  24. PACLITAXEL. [Concomitant]
     Active Substance: PACLITAXEL
     Indication: PRODUCT USED FOR UNKNOWN INDICATION
     Dosage: UNK, QD (64)
     Dates: start: 20180918, end: 20180918
  25. PACLITAXEL. [Concomitant]
     Active Substance: PACLITAXEL
     Dosage: UNK, QD (64)
     Dates: start: 20181105, end: 20181105
  26. FILGRASTIM [Suspect]
     Active Substance: FILGRASTIM
     Dosage: UNK, QD (300)
     Route: 065
     Dates: start: 20180927, end: 20180927
  27. RAMUCIRUMAB [Concomitant]
     Active Substance: RAMUCIRUMAB
     Dosage: UNK, QD
     Dates: start: 20180903, end: 20180903
  28. CHLORPHENAMINE [Concomitant]
     Active Substance: CHLORPHENIRAMINE MALEATE
     Dosage: 4 MILLIGRAM, QD
     Dates: start: 20181120, end: 20181120
  29. DEXAMETHASONE. [Concomitant]
     Active Substance: DEXAMETHASONE
     Dosage: 10 MILLIGRAM, QD
     Dates: start: 20181120, end: 20181120
  30. FILGRASTIM [Suspect]
     Active Substance: FILGRASTIM
     Indication: PRODUCT USED FOR UNKNOWN INDICATION
     Dosage: UNK, QD (150)
     Route: 065
     Dates: start: 20180827, end: 20180827
  31. CHLORPHENAMINE [Concomitant]
     Active Substance: CHLORPHENIRAMINE MALEATE
     Dosage: 4 MILLIGRAM, QD
     Dates: start: 20180918, end: 20180918
  32. DEXAMETHASONE. [Concomitant]
     Active Substance: DEXAMETHASONE
     Dosage: 10 MILLIGRAM, QD
     Dates: start: 20180918, end: 20180918
  33. DEXAMETHASONE. [Concomitant]
     Active Substance: DEXAMETHASONE
     Dosage: 10 MILLIGRAM, QD
     Dates: start: 20181005, end: 20181005
  34. RAMUCIRUMAB [Concomitant]
     Active Substance: RAMUCIRUMAB
     Dosage: UNK, QD
     Dates: start: 20180820, end: 20180820
  35. PACLITAXEL. [Concomitant]
     Active Substance: PACLITAXEL
     Dosage: UNK, QD (64)
     Dates: start: 20181005, end: 20181005
  36. PACLITAXEL. [Concomitant]
     Active Substance: PACLITAXEL
     Dosage: UNK, QD (64)
     Dates: start: 20181112, end: 20181112
  37. PACLITAXEL. [Concomitant]
     Active Substance: PACLITAXEL
     Dosage: UNK, QD (80)
     Dates: start: 20180813, end: 20180813
  38. PACLITAXEL. [Concomitant]
     Active Substance: PACLITAXEL
     Dosage: UNK, QD (80)
     Dates: start: 20180820, end: 20180820

REACTIONS (2)
  - Neutropenia [Recovered/Resolved]
  - Neutrophil count decreased [Recovered/Resolved]

NARRATIVE: CASE EVENT DATE: 20181126
